FAERS Safety Report 8806244 (Version 1)
Quarter: 2012Q4

REPORT INFORMATION
  Report Type: 
  Country: US (occurrence: US)
  Receive Date: 20120925
  Receipt Date: 20120925
  Transmission Date: 20130627
  Serious: Yes (Hospitalization)
  Sender: FDA-Public Use
  Company Number: PHEH2012US018504

PATIENT
  Sex: Male
  Weight: 90.7 kg

DRUGS (6)
  1. TRILEPTAL [Suspect]
     Indication: BIPOLAR I DISORDER
     Dosage: 600 mg two times a day
     Dates: start: 200307, end: 2004
  2. TRILEPTAL [Suspect]
     Dosage: 600 mg two times a day
     Dates: start: 2005
  3. ZYPREXA [Suspect]
     Indication: BIPOLAR I DISORDER
     Dates: start: 200307
  4. SEROQUEL [Suspect]
     Indication: BIPOLAR I DISORDER
     Dates: start: 200307
  5. GEODON [Suspect]
     Indication: BIPOLAR I DISORDER
     Dosage: 40 mg three times a day
     Dates: end: 2004
  6. GEODON [Suspect]
     Dosage: 40 mg three times a day

REACTIONS (2)
  - Mania [Recovered/Resolved]
  - Drug ineffective [Unknown]
